FAERS Safety Report 15164271 (Version 1)
Quarter: 2018Q3

REPORT INFORMATION
  Report Type: Spontaneous
  Country: US (occurrence: US)
  Receive Date: 20180719
  Receipt Date: 20180719
  Transmission Date: 20181010
  Serious: No
  Sender: FDA-Public Use
  Company Number: US-PFIZER INC-2018289054

PATIENT
  Sex: Female

DRUGS (1)
  1. SODIUM BICARBONATE. [Suspect]
     Active Substance: SODIUM BICARBONATE
     Dosage: UNK (8.4%, 50MEQ/50ML)

REACTIONS (2)
  - Occupational exposure to product [Unknown]
  - Laceration [Unknown]
